FAERS Safety Report 10079864 (Version 2)
Quarter: 2014Q2

REPORT INFORMATION
  Report Type: Spontaneous
  Country: GB (occurrence: GB)
  Receive Date: 20140415
  Receipt Date: 20140520
  Transmission Date: 20141212
  Serious: Yes (Death, Other)
  Sender: FDA-Public Use
  Company Number: GB-BANPHARM-20142526

PATIENT
  Sex: Female

DRUGS (5)
  1. IBUPROFEN UNKNOWN PRODUCT [Suspect]
     Route: 048
  2. ELIQUIS [Suspect]
  3. METFORMIN HYDROCHLORIDE [Suspect]
     Indication: DIABETES MELLITUS
  4. NAPROXEN [Concomitant]
  5. RAMIPRIL [Concomitant]

REACTIONS (6)
  - Blood pressure decreased [Unknown]
  - Creatinine renal clearance abnormal [Unknown]
  - Drug interaction [Unknown]
  - Infection [Unknown]
  - Renal failure [Unknown]
  - Death [Fatal]
